FAERS Safety Report 5049361-3 (Version None)
Quarter: 2006Q2

REPORT INFORMATION
  Report Type: 
  Country: None (occurrence: None)
  Receive Date: 20060613
  Receipt Date: 20060508
  Transmission Date: 20061013
  Serious: No
  Sender: FDA-Public Use
  Company Number: 2006-00695

PATIENT
  Age: 56 Year
  Sex: Female
  Weight: 90.7 kg

DRUGS (5)
  1. VELCADE [Suspect]
     Indication: MULTIPLE MYELOMA
     Dosage: 2.06 MG/M2, INTRAVENOUS
     Route: 042
     Dates: start: 20060210, end: 20060324
  2. ZOLOFT [Concomitant]
  3. SYNTHROID [Concomitant]
  4. LIPITOR [Concomitant]
  5. AREDIA [Concomitant]

REACTIONS (4)
  - CHILLS [None]
  - DIZZINESS [None]
  - HYPOTENSION [None]
  - PYREXIA [None]
